FAERS Safety Report 10109225 (Version 2)
Quarter: 2014Q2

REPORT INFORMATION
  Report Type: Spontaneous
  Country: DE (occurrence: DE)
  Receive Date: 20140425
  Receipt Date: 20140610
  Transmission Date: 20141212
  Serious: Yes (Hospitalization)
  Sender: FDA-Public Use
  Company Number: DE-ROCHE-1390164

PATIENT
  Age: 7 Year
  Sex: Female
  Weight: 22 kg

DRUGS (2)
  1. XOLAIR [Suspect]
     Indication: PRODUCT USED FOR UNKNOWN INDICATION
     Route: 065
     Dates: start: 20140416
  2. XOLAIR [Suspect]
     Route: 065
     Dates: start: 20140604

REACTIONS (3)
  - Pulmonary function test decreased [Recovered/Resolved]
  - Obstruction [Recovered/Resolved]
  - Oxygen saturation decreased [Recovered/Resolved]
